FAERS Safety Report 4280319-8 (Version None)
Quarter: 2004Q1

REPORT INFORMATION
  Report Type: 
  Country: None (occurrence: None)
  Receive Date: 20040126
  Receipt Date: 20040114
  Transmission Date: 20041129
  Serious: Yes (Death, Other)
  Sender: FDA-Public Use
  Company Number: UK061172

PATIENT
  Age: 57 Year
  Sex: Female

DRUGS (1)
  1. ARANESP [Suspect]
     Dosage: 40 MCG, WEEKLY, IV
     Route: 042
     Dates: start: 20031001, end: 20031201

REACTIONS (2)
  - CARDIAC ARREST [None]
  - CARDIAC FAILURE ACUTE [None]
